FAERS Safety Report 16608044 (Version 2)
Quarter: 2019Q3

REPORT INFORMATION
  Report Type: Report from Study
  Country: KR (occurrence: KR)
  Receive Date: 20190722
  Receipt Date: 20190808
  Transmission Date: 20191004
  Serious: Yes (Hospitalization)
  Sender: FDA-Public Use
  Company Number: KR-009507513-1907KOR011583

PATIENT
  Sex: Female

DRUGS (7)
  1. PEMBROLIZUMAB. [Suspect]
     Active Substance: PEMBROLIZUMAB
     Dosage: QUANTITY: 2, DAYS: 1
     Dates: start: 20190622, end: 20190622
  2. PEMBROLIZUMAB. [Suspect]
     Active Substance: PEMBROLIZUMAB
     Indication: CERVIX CARCINOMA
     Dosage: QUANTITY: 2, DAYS: 1
     Dates: start: 20190601, end: 20190601
  3. SODIUM CHLORIDE. [Concomitant]
     Active Substance: SODIUM CHLORIDE
     Dosage: 100 ML  (QUANTITY 1; DAYS 1)
     Dates: start: 20190601, end: 20190601
  4. SODIUM CHLORIDE. [Concomitant]
     Active Substance: SODIUM CHLORIDE
     Dosage: 50 ML (BAG) (QUANTITY 2; DAYS 1)
     Dates: start: 20190622, end: 20190622
  5. PEMBROLIZUMAB. [Suspect]
     Active Substance: PEMBROLIZUMAB
     Dosage: QUANTITY: 2, DAYS: 1
     Dates: start: 20190723, end: 20190723
  6. CLETAMIN [Concomitant]
     Dosage: 500 ML
     Dates: start: 20190601, end: 20190601
  7. SODIUM CHLORIDE. [Concomitant]
     Active Substance: SODIUM CHLORIDE
     Dosage: 1000 UNK
     Dates: start: 20190531, end: 20190531

REACTIONS (4)
  - Inappropriate schedule of product administration [Unknown]
  - Adverse event [Unknown]
  - Adverse event [Unknown]
  - Product used for unknown indication [Unknown]

NARRATIVE: CASE EVENT DATE: 2019
